FAERS Safety Report 25972238 (Version 1)
Quarter: 2025Q4

REPORT INFORMATION
  Report Type: Spontaneous
  Country: US (occurrence: US)
  Receive Date: 20251029
  Receipt Date: 20251029
  Transmission Date: 20260118
  Serious: Yes (Hospitalization)
  Sender: BEIGENE
  Company Number: US-BEIGENE-BGN-2025-018435

PATIENT
  Age: 68 Year

DRUGS (1)
  1. BRUKINSA [Suspect]
     Active Substance: ZANUBRUTINIB
     Indication: Hodgkin^s disease
     Dosage: 160 MILLIGRAM, BID

REACTIONS (2)
  - General physical condition abnormal [Unknown]
  - Off label use [Unknown]
